FAERS Safety Report 4416750-7 (Version None)
Quarter: 2004Q3

REPORT INFORMATION
  Report Type: 
  Country: None (occurrence: None)
  Receive Date: 20040805
  Receipt Date: 20040714
  Transmission Date: 20050211
  Serious: Yes (Death, Life-Threatening)
  Sender: FDA-Public Use
  Company Number: JP-MERCK-0407USA01311

PATIENT
  Age: 70 Year
  Sex: Female
  Weight: 55 kg

DRUGS (3)
  1. CEFAZOLIN [Concomitant]
     Indication: PNEUMONIA
     Route: 051
     Dates: start: 20040610, end: 20040616
  2. CEFAZOLIN [Concomitant]
     Route: 051
     Dates: start: 20040621, end: 20040624
  3. PRIMAXIN [Suspect]
     Indication: PNEUMONIA
     Route: 042
     Dates: start: 20040624, end: 20040630

REACTIONS (2)
  - AGRANULOCYTOSIS [None]
  - PNEUMONIA [None]
